FAERS Safety Report 11990035 (Version 1)
Quarter: 2016Q1

REPORT INFORMATION
  Report Type: Spontaneous
  Country: US (occurrence: US)
  Receive Date: 20160202
  Receipt Date: 20160202
  Transmission Date: 20160526
  Serious: No
  Sender: FDA-Public Use
  Company Number: US-ROCHE-1651180

PATIENT
  Age: 2 Year
  Sex: Female
  Weight: 11.35 kg

DRUGS (1)
  1. NUTROPIN [Suspect]
     Active Substance: SOMATROPIN
     Indication: BLOOD GROWTH HORMONE
     Route: 058
     Dates: start: 20150925

REACTIONS (2)
  - Injection site bruising [Unknown]
  - Injection site nodule [Unknown]

NARRATIVE: CASE EVENT DATE: 20150925
